FAERS Safety Report 9158615 (Version 2)
Quarter: 2013Q1

REPORT INFORMATION
  Report Type: Spontaneous
  Country: SI (occurrence: SI)
  Receive Date: 20130312
  Receipt Date: 20130319
  Transmission Date: 20140127
  Serious: Yes (Hospitalization, Other)
  Sender: FDA-Public Use
  Company Number: SI-PFIZER INC-2013078971

PATIENT
  Age: 79 Year
  Sex: Female

DRUGS (8)
  1. METHOTREXATE SODIUM [Suspect]
     Indication: RHEUMATOID ARTHRITIS
     Dosage: 7.5 TO 10 MG ONCE A WEEK, LOW DOSE
     Dates: start: 1998
  2. TRIMETHOPRIM, SULFAMETHOXAZOLE [Interacting]
     Indication: CYSTITIS
     Dosage: FOR ONE WEEK
     Dates: start: 200602
  3. FOLIC ACID [Concomitant]
     Dosage: 5 MG
     Dates: start: 1998
  4. ASASANTIN [Concomitant]
     Dosage: UNK
  5. NIFEDIPINE [Concomitant]
     Dosage: UNK
  6. ESCITALOPRAM [Concomitant]
     Dosage: UNK
  7. REPAGLINIDE [Concomitant]
     Dosage: UNK
  8. BISOPROLOL [Concomitant]
     Dosage: UNK

REACTIONS (8)
  - Drug interaction [Unknown]
  - Pancytopenia [Recovered/Resolved]
  - Gingival bleeding [None]
  - Pain [None]
  - Fatigue [None]
  - Petechiae [None]
  - Haematoma [None]
  - Toxicity to various agents [None]
